FAERS Safety Report 19825879 (Version 1)
Quarter: 2021Q3

REPORT INFORMATION
  Report Type: Report from Study
  Country: GB (occurrence: GB)
  Receive Date: 20210914
  Receipt Date: 20210914
  Transmission Date: 20211014
  Serious: Yes (Hospitalization, Other)
  Sender: FDA-Public Use
  Company Number: GB-SA-2021SA271947

PATIENT
  Age: 39 Year
  Sex: Male

DRUGS (1)
  1. DUPILUMAB [Suspect]
     Active Substance: DUPILUMAB
     Indication: DERMATITIS ATOPIC
     Dosage: 300 MG
     Route: 058
     Dates: start: 202104

REACTIONS (9)
  - Eye irritation [Unknown]
  - Colitis ulcerative [Unknown]
  - Haemorrhage [Unknown]
  - Oral herpes [Unknown]
  - Addison^s disease [Unknown]
  - Eye pruritus [Unknown]
  - Abdominal pain upper [Unknown]
  - Eye discharge [Unknown]
  - Eye pain [Unknown]

NARRATIVE: CASE EVENT DATE: 2021
